FAERS Safety Report 11142885 (Version 1)
Quarter: 2015Q2

REPORT INFORMATION
  Report Type: Spontaneous
  Country: ES (occurrence: ES)
  Receive Date: 20150525
  Receipt Date: 20150525
  Transmission Date: 20150821
  Serious: Yes (Hospitalization)
  Sender: FDA-Public Use
  Company Number: ES-JNJFOC-20150509393

PATIENT

DRUGS (2)
  1. KETAMINE [Suspect]
     Active Substance: KETAMINE
     Indication: PAIN
     Route: 065
  2. FENTANYL. [Suspect]
     Active Substance: FENTANYL
     Indication: CANCER PAIN
     Route: 065

REACTIONS (12)
  - Disturbance in attention [Unknown]
  - Dyspepsia [Unknown]
  - Nausea [Unknown]
  - Drug ineffective [Unknown]
  - Constipation [Unknown]
  - Euphoric mood [Unknown]
  - Vomiting [Unknown]
  - Dry mouth [Unknown]
  - Decreased appetite [Unknown]
  - Skin irritation [Unknown]
  - Somnolence [Unknown]
  - Dizziness [Unknown]
